FAERS Safety Report 23410513 (Version 1)
Quarter: 2024Q1

REPORT INFORMATION
  Report Type: Spontaneous
  Country: US (occurrence: US)
  Receive Date: 20240117
  Receipt Date: 20240117
  Transmission Date: 20240410
  Serious: Yes (Hospitalization)
  Sender: FDA-Public Use
  Company Number: US-PPDUS-2024ST000262

PATIENT
  Age: 72 Year
  Sex: Female

DRUGS (1)
  1. ORSERDU [Suspect]
     Active Substance: ELACESTRANT
     Indication: Product used for unknown indication
     Route: 048
     Dates: start: 20231025

REACTIONS (7)
  - Blood urine present [Unknown]
  - Urinary tract infection [Unknown]
  - Dehydration [Unknown]
  - Oedema peripheral [Unknown]
  - Illness [Unknown]
  - Decreased appetite [Unknown]
  - Vomiting [Unknown]
